FAERS Safety Report 10401021 (Version 6)
Quarter: 2015Q1

REPORT INFORMATION
  Report Type: Report from Study
  Country: CA (occurrence: CA)
  Receive Date: 20140821
  Receipt Date: 20150217
  Transmission Date: 20150720
  Serious: Yes (Other)
  Sender: FDA-Public Use
  Company Number: CA-ROCHE-1297237

PATIENT
  Age: 55 Year
  Sex: Female
  Weight: 74 kg

DRUGS (8)
  1. PREMARIN [Concomitant]
     Active Substance: ESTROGENS, CONJUGATED
  2. METHOTREXATE [Concomitant]
     Active Substance: METHOTREXATE
  3. CELEXA [Concomitant]
     Active Substance: CITALOPRAM HYDROBROMIDE
  4. ACTEMRA [Suspect]
     Active Substance: TOCILIZUMAB
     Route: 042
     Dates: start: 20130731
  5. ACTEMRA [Suspect]
     Active Substance: TOCILIZUMAB
     Indication: RHEUMATOID ARTHRITIS
     Route: 042
     Dates: start: 20130704
  6. PROMETRIUM [Concomitant]
     Active Substance: PROGESTERONE
  7. FOLIC ACID. [Concomitant]
     Active Substance: FOLIC ACID
  8. CELEBREX [Concomitant]
     Active Substance: CELECOXIB

REACTIONS (11)
  - Cystitis [Unknown]
  - Pain [Not Recovered/Not Resolved]
  - Diarrhoea [Unknown]
  - Lower respiratory tract infection [Recovered/Resolved]
  - Fatigue [Not Recovered/Not Resolved]
  - Rash [Recovering/Resolving]
  - Cough [Not Recovered/Not Resolved]
  - Rosacea [Unknown]
  - Infected bites [Unknown]
  - Headache [Unknown]
  - Fibromyalgia [Unknown]

NARRATIVE: CASE EVENT DATE: 20140505
